FAERS Safety Report 6794953-4 (Version None)
Quarter: 2010Q2

REPORT INFORMATION
  Report Type: 
  Country: None (occurrence: None)
  Receive Date: 20100625
  Receipt Date: 20100615
  Transmission Date: 20101027
  Serious: Yes (Hospitalization, Other)
  Sender: FDA-Public Use
  Company Number: US-PFIZER INC-2010075567

PATIENT
  Sex: Female
  Weight: 78.017 kg

DRUGS (11)
  1. LYRICA [Suspect]
     Indication: FIBROMYALGIA
     Dosage: 50 MG, 1X/DAY
     Route: 048
  2. LYRICA [Suspect]
     Dosage: 75 MG, 1X/DAY
  3. LYRICA [Suspect]
     Dosage: 75 MG, 2X/DAY
  4. NEURONTIN [Suspect]
     Indication: POLYNEUROPATHY
     Dosage: UNK
     Route: 048
     Dates: start: 20020101, end: 20030101
  5. NEURONTIN [Suspect]
     Indication: PAIN
  6. PREDNISONE [Suspect]
     Indication: SYSTEMIC LUPUS ERYTHEMATOSUS
     Dosage: 10 MG, 1X/DAY
  7. DETROL [Concomitant]
     Indication: URINARY INCONTINENCE
     Dosage: UNK
  8. XANAX [Concomitant]
     Indication: ANXIETY
     Dosage: 25 TO 50MG
  9. XANAX [Concomitant]
     Indication: POLYNEUROPATHY
  10. ARICEPT [Concomitant]
     Dosage: UNK
  11. PHENOBARBITAL [Concomitant]
     Indication: CONVULSION
     Dosage: UNK

REACTIONS (11)
  - ANTICONVULSANT DRUG LEVEL BELOW THERAPEUTIC [None]
  - CEREBROVASCULAR ACCIDENT [None]
  - EAR INFECTION [None]
  - HYPERTENSION [None]
  - IMMUNE SYSTEM DISORDER [None]
  - MALAISE [None]
  - PNEUMONIA PRIMARY ATYPICAL [None]
  - SINUSITIS [None]
  - SLEEP APNOEA SYNDROME [None]
  - VOMITING [None]
  - WEIGHT INCREASED [None]
